FAERS Safety Report 13833662 (Version 2)
Quarter: 2017Q3

REPORT INFORMATION
  Report Type: Spontaneous
  Country: US (occurrence: US)
  Receive Date: 20170804
  Receipt Date: 20170828
  Transmission Date: 20171127
  Serious: Yes (Other)
  Sender: FDA-Public Use
  Company Number: US-LUNDBECK-DKLU2035113

PATIENT
  Sex: Male

DRUGS (3)
  1. NORTHERA [Suspect]
     Active Substance: DROXIDOPA
     Route: 065
     Dates: start: 201608
  2. SULFUR. [Suspect]
     Active Substance: SULFUR
     Indication: PRODUCT USED FOR UNKNOWN INDICATION
     Route: 065
  3. NORTHERA [Suspect]
     Active Substance: DROXIDOPA
     Indication: PRODUCT USED FOR UNKNOWN INDICATION
     Dosage: SCHEDULE C
     Route: 065
     Dates: start: 20160812

REACTIONS (4)
  - Cataract operation [Unknown]
  - Loss of personal independence in daily activities [Unknown]
  - Inappropriate schedule of drug administration [Not Recovered/Not Resolved]
  - Therapeutic response decreased [Unknown]
